FAERS Safety Report 17513402 (Version 2)
Quarter: 2022Q2

REPORT INFORMATION
  Report Type: Spontaneous
  Country: CH (occurrence: CH)
  Receive Date: 20200306
  Receipt Date: 20220403
  Transmission Date: 20220721
  Serious: Yes (Congenital Anomaly, Other)
  Sender: FDA-Public Use
  Company Number: CH-VALIDUS PHARMACEUTICALS LLC-CH-2020VAL000171

PATIENT

DRUGS (2)
  1. FUROSEMIDE [Suspect]
     Active Substance: FUROSEMIDE
     Indication: Maternal exposure timing unspecified
     Dosage: UNK
     Route: 064
  2. CANDESARTAN CILEXETIL\HYDROCHLOROTHIAZIDE [Suspect]
     Active Substance: CANDESARTAN CILEXETIL\HYDROCHLOROTHIAZIDE
     Indication: Maternal exposure timing unspecified
     Dosage: UNK
     Route: 064

REACTIONS (1)
  - Heart disease congenital [Unknown]
